FAERS Safety Report 20523454 (Version 2)
Quarter: 2022Q1

REPORT INFORMATION
  Report Type: Spontaneous
  Country: US (occurrence: US)
  Receive Date: 20220228
  Receipt Date: 20220303
  Transmission Date: 20220423
  Serious: No
  Sender: FDA-Public Use
  Company Number: US-ABBVIE-22K-163-4292736-00

PATIENT
  Age: 70 Year
  Sex: Male

DRUGS (5)
  1. HUMIRA [Suspect]
     Active Substance: ADALIMUMAB
     Indication: Sympathetic ophthalmia
     Route: 058
     Dates: start: 2017, end: 202109
  2. HUMIRA [Suspect]
     Active Substance: ADALIMUMAB
     Indication: Eye inflammation
     Route: 058
     Dates: start: 202202
  3. CELLCEPT [Concomitant]
     Active Substance: MYCOPHENOLATE MOFETIL
     Indication: Eye disorder
  4. MODERNA COVID-19 VACCINE [Concomitant]
     Active Substance: ELASOMERAN
     Indication: COVID-19 immunisation
     Dosage: MODERNA
     Route: 030
     Dates: start: 2021, end: 2021
  5. MODERNA COVID-19 VACCINE [Concomitant]
     Active Substance: ELASOMERAN
     Dosage: MODERNA
     Route: 030
     Dates: start: 202109, end: 202109

REACTIONS (3)
  - Off label use [Not Recovered/Not Resolved]
  - Incorrect dose administered [Recovered/Resolved]
  - Blood triglycerides increased [Unknown]

NARRATIVE: CASE EVENT DATE: 20211101
